FAERS Safety Report 24615023 (Version 1)
Quarter: 2024Q4

REPORT INFORMATION
  Report Type: Spontaneous
  Country: US (occurrence: US)
  Receive Date: 20241113
  Receipt Date: 20241113
  Transmission Date: 20250114
  Serious: Yes (Death, Other)
  Sender: PURDUE
  Company Number: US-PURDUE PHARMA-USA-2024-0313218

PATIENT
  Age: 63 Year
  Sex: Female

DRUGS (1)
  1. OXYCODONE HYDROCHLORIDE [Suspect]
     Active Substance: OXYCODONE HYDROCHLORIDE
     Indication: Pain management
     Dosage: UNK
     Route: 065

REACTIONS (4)
  - Road traffic accident [Fatal]
  - Impaired driving ability [Fatal]
  - Drug dependence [Unknown]
  - Abnormal behaviour [Unknown]
